FAERS Safety Report 24107695 (Version 2)
Quarter: 2024Q3

REPORT INFORMATION
  Report Type: Spontaneous
  Country: US (occurrence: US)
  Receive Date: 20240718
  Receipt Date: 20240810
  Transmission Date: 20241016
  Serious: Yes (Life-Threatening, Hospitalization)
  Sender: TEVA
  Company Number: US-TEVA-VS-3220187

PATIENT
  Age: 72 Year
  Sex: Male

DRUGS (3)
  1. PREDNISONE [Suspect]
     Active Substance: PREDNISONE
     Indication: Interstitial lung disease
     Route: 065
  2. MYCOPHENOLATE MOFETIL [Suspect]
     Active Substance: MYCOPHENOLATE MOFETIL
     Indication: Interstitial lung disease
     Route: 065
  3. FUROSEMIDE [Suspect]
     Active Substance: FUROSEMIDE
     Indication: Left ventricular failure
     Route: 065

REACTIONS (1)
  - Drug ineffective [Unknown]
